FAERS Safety Report 5083547-7 (Version None)
Quarter: 2006Q3

REPORT INFORMATION
  Report Type: 
  Country: None (occurrence: None)
  Receive Date: 20060818
  Receipt Date: 20060324
  Transmission Date: 20061208
  Serious: Yes (Disabling)
  Sender: FDA-Public Use
  Company Number: GB-BRISTOL-MYERS SQUIBB COMPANY-13394929

PATIENT
  Age: 45 Year
  Sex: Female
  Weight: 65 kg

DRUGS (7)
  1. PACLITAXEL [Suspect]
     Indication: BREAST CANCER
     Route: 042
     Dates: start: 20060310, end: 20060310
  2. GEMCITABINE [Suspect]
     Indication: BREAST CANCER
     Route: 042
     Dates: start: 20060310, end: 20060310
  3. CIPROFLOXACIN [Concomitant]
     Indication: ANTI-INFECTIVE THERAPY
     Route: 048
     Dates: start: 20060304, end: 20060324
  4. FLUCONAZOLE [Concomitant]
     Indication: LOCAL ANTIFUNGAL TREATMENT
     Route: 048
     Dates: start: 20060304, end: 20060324
  5. ONDANSETRON HCL [Concomitant]
     Indication: PREMEDICATION
     Route: 048
     Dates: start: 20060304
  6. DOMPERIDONE [Concomitant]
     Indication: PREMEDICATION
     Route: 048
     Dates: start: 20060224
  7. CIMETIDINE [Concomitant]
     Indication: PREMEDICATION
     Route: 042
     Dates: start: 20060224

REACTIONS (2)
  - EYE PAIN [None]
  - VISUAL DISTURBANCE [None]
